FAERS Safety Report 6377873-9 (Version None)
Quarter: 2009Q3

REPORT INFORMATION
  Report Type: 
  Country: None (occurrence: None)
  Receive Date: 20090925
  Receipt Date: 20090915
  Transmission Date: 20100115
  Serious: Yes (Other)
  Sender: FDA-Public Use
  Company Number: PHHY2009BR39904

PATIENT
  Sex: Female

DRUGS (7)
  1. TEGRETOL-XR [Suspect]
     Indication: BIPOLAR DISORDER
     Dosage: 400 MG, TID
     Route: 048
  2. TEGRETOL-XR [Suspect]
     Dosage: 400 MG, BID
     Route: 048
  3. RIVOTRIL [Concomitant]
     Indication: SLEEP DISORDER
     Dosage: 20 DRP
  4. ATACAND HCT [Concomitant]
     Indication: HYPERTENSION
     Dosage: 1 DF, QD
     Route: 048
     Dates: start: 20070101
  5. DALMADORM [Concomitant]
     Indication: SLEEP DISORDER
     Dosage: 1 DF, QD
     Dates: start: 20090701
  6. ALENDRONATE SODIUM [Concomitant]
     Indication: RESORPTION BONE INCREASED
     Dosage: 70 MG, QW
     Dates: start: 20090805
  7. OYSTER SHELL CALCIUM WITH VITAMIN D [Concomitant]

REACTIONS (12)
  - ABASIA [None]
  - ANKLE FRACTURE [None]
  - BACTERIA URINE [None]
  - CHROMATURIA [None]
  - DEAFNESS [None]
  - DYSURIA [None]
  - FALL [None]
  - PROTEIN URINE [None]
  - TYMPANIC MEMBRANE PERFORATION [None]
  - URINE ODOUR ABNORMAL [None]
  - VISUAL ACUITY REDUCED [None]
  - WEIGHT DECREASED [None]
